FAERS Safety Report 6679740-X (Version None)
Quarter: 2010Q2

REPORT INFORMATION
  Report Type: 
  Country: None (occurrence: None)
  Receive Date: 20100413
  Receipt Date: 20100407
  Transmission Date: 20101027
  Serious: Yes (Hospitalization)
  Sender: FDA-Public Use
  Company Number: NL-MERCK-1004USA01217

PATIENT
  Age: 37 Year
  Sex: Male

DRUGS (7)
  1. DECADRON [Suspect]
     Route: 048
  2. LEVETIRACETAM [Concomitant]
     Route: 065
  3. VALPROAT [Concomitant]
     Route: 065
  4. CLOBAZAM [Concomitant]
     Route: 065
  5. LOMUSTINE [Suspect]
     Indication: ASTROCYTOMA
     Route: 065
     Dates: start: 20081101
  6. PROCARBAZINE [Suspect]
     Indication: ASTROCYTOMA
     Route: 065
     Dates: start: 20081101
  7. VINCRISTINE SULFATE [Suspect]
     Indication: ASTROCYTOMA
     Route: 065
     Dates: start: 20081101

REACTIONS (1)
  - FEBRILE NEUTROPENIA [None]
